FAERS Safety Report 13254654 (Version 1)
Quarter: 2017Q1

REPORT INFORMATION
  Report Type: Spontaneous
  Country: US (occurrence: US)
  Receive Date: 20170217
  Receipt Date: 20170217
  Transmission Date: 20170428
  Serious: No
  Sender: FDA-Public Use
  Company Number: None

PATIENT
  Sex: Female

DRUGS (1)
  1. IBRANCE [Suspect]
     Active Substance: PALBOCICLIB
     Indication: BREAST CANCER FEMALE
     Dosage: FREQUENCY - ONCE DAILY FOR 21 DAYS, THEN 7 DAYS OFF PO
     Route: 048
     Dates: start: 20161223, end: 20170214

REACTIONS (15)
  - Alopecia [None]
  - White blood cell count decreased [None]
  - Cough [None]
  - Hypoaesthesia [None]
  - Weight increased [None]
  - Lacrimation increased [None]
  - Night sweats [None]
  - Sleep disorder [None]
  - Vision blurred [None]
  - Flushing [None]
  - Fatigue [None]
  - Hypoaesthesia oral [None]
  - Bone pain [None]
  - Nausea [None]
  - Anaemia [None]
